FAERS Safety Report 7515312-2 (Version None)
Quarter: 2011Q2

REPORT INFORMATION
  Report Type: 
  Country: None (occurrence: None)
  Receive Date: 20110601
  Receipt Date: 20110520
  Transmission Date: 20111010
  Serious: Yes (Other)
  Sender: FDA-Public Use
  Company Number: AT-ELI_LILLY_AND_COMPANY-AT201105005881

PATIENT
  Sex: Male

DRUGS (2)
  1. CIALIS [Suspect]
     Dosage: 20 MG, OTHER
  2. TRAZODONE HCL [Concomitant]
     Indication: INSOMNIA

REACTIONS (3)
  - ERECTILE DYSFUNCTION [None]
  - PRIAPISM [None]
  - THROMBOSIS [None]
